FAERS Safety Report 12772744 (Version 1)
Quarter: 2016Q3

REPORT INFORMATION
  Report Type: Spontaneous
  Country: US (occurrence: US)
  Receive Date: 20160922
  Receipt Date: 20160922
  Transmission Date: 20161109
  Serious: Yes (Other)
  Sender: FDA-Public Use
  Company Number: US-SA-2016SA169020

PATIENT
  Sex: Female

DRUGS (1)
  1. ALLEGRA ALLERGY [Suspect]
     Active Substance: FEXOFENADINE HYDROCHLORIDE
     Route: 065
     Dates: start: 201508

REACTIONS (3)
  - Haematochezia [Unknown]
  - Large intestine polyp [Unknown]
  - Anaemia [Unknown]
